FAERS Safety Report 23669015 (Version 1)
Quarter: 2024Q1

REPORT INFORMATION
  Report Type: Spontaneous
  Country: US (occurrence: US)
  Receive Date: 20240325
  Receipt Date: 20240325
  Transmission Date: 20240409
  Serious: No
  Sender: FDA-Public Use
  Company Number: US-SA-SAC20240322000090

PATIENT
  Sex: Female
  Weight: 68.492 kg

DRUGS (1)
  1. DUPIXENT [Suspect]
     Active Substance: DUPILUMAB
     Indication: Dermatitis atopic
     Dosage: 300 MG, TOTAL
     Route: 058

REACTIONS (4)
  - Scratch [Unknown]
  - Skin ulcer [Unknown]
  - Injection site swelling [Unknown]
  - Incorrect dose administered [Unknown]
